FAERS Safety Report 10485599 (Version 2)
Quarter: 2014Q4

REPORT INFORMATION
  Report Type: Spontaneous
  Country: NL (occurrence: NL)
  Receive Date: 20141001
  Receipt Date: 20141001
  Transmission Date: 20150528
  Serious: Yes (Death)
  Sender: FDA-Public Use
  Company Number: NL-ASTRAZENECA-2014SE61473

PATIENT
  Age: 19221 Day
  Sex: Female

DRUGS (3)
  1. FASLODEX [Suspect]
     Active Substance: FULVESTRANT
     Indication: METASTASES TO BREAST
     Route: 030
     Dates: start: 20140805
  2. FASLODEX [Suspect]
     Active Substance: FULVESTRANT
     Indication: METASTASES TO BREAST
     Route: 030
     Dates: start: 20140819
  3. FASLODEX [Suspect]
     Active Substance: FULVESTRANT
     Indication: METASTASES TO BREAST
     Route: 030
     Dates: start: 20140902

REACTIONS (2)
  - Muscular weakness [Not Recovered/Not Resolved]
  - Death [Fatal]

NARRATIVE: CASE EVENT DATE: 20140805
